FAERS Safety Report 5421702-4 (Version None)
Quarter: 2007Q3

REPORT INFORMATION
  Report Type: 
  Country: None (occurrence: None)
  Receive Date: 20070817
  Receipt Date: 20070806
  Transmission Date: 20080115
  Serious: Yes (Other)
  Sender: FDA-Public Use
  Company Number: 230004M07ITA

PATIENT
  Age: 35 Year
  Sex: Male

DRUGS (3)
  1. REBIF [Suspect]
     Indication: MULTIPLE SCLEROSIS
     Dosage: 44 MCG, 3 IN 1 WEEKS, SUBCUTANEOUS
     Route: 058
     Dates: start: 20070306, end: 20070401
  2. TROMCARDIN [Concomitant]
  3. DEXAMETHASONE SODIUM PHOSPHATE [Concomitant]

REACTIONS (1)
  - HEPATITIS [None]
